FAERS Safety Report 7108765-5 (Version None)
Quarter: 2010Q4

REPORT INFORMATION
  Report Type: 
  Country: None (occurrence: None)
  Receive Date: 20101112
  Receipt Date: 20101030
  Transmission Date: 20110411
  Serious: Yes (Other)
  Sender: FDA-Public Use
  Company Number: 021444

PATIENT
  Age: 70 Year
  Sex: Female

DRUGS (1)
  1. CIMZIA [Suspect]
     Dosage: SUBCUTANEOUS
     Route: 058

REACTIONS (2)
  - CUSHING'S SYNDROME [None]
  - DRUG INEFFECTIVE [None]
